FAERS Safety Report 20994676 (Version 2)
Quarter: 2022Q3

REPORT INFORMATION
  Report Type: Spontaneous
  Country: US (occurrence: US)
  Receive Date: 20220622
  Receipt Date: 20220701
  Transmission Date: 20221027
  Serious: No
  Sender: FDA-Public Use
  Company Number: US-ALLERGAN-2217255US

PATIENT
  Age: 76 Year
  Sex: Female

DRUGS (1)
  1. RESTASIS [Suspect]
     Active Substance: CYCLOSPORINE
     Indication: Dry eye
     Dosage: UNK

REACTIONS (4)
  - Foreign body in eye [Not Recovered/Not Resolved]
  - Product delivery mechanism issue [Unknown]
  - Ocular discomfort [Not Recovered/Not Resolved]
  - Product contamination physical [Unknown]

NARRATIVE: CASE EVENT DATE: 20220523
